FAERS Safety Report 7234144-6 (Version None)
Quarter: 2011Q1

REPORT INFORMATION
  Report Type: 
  Country: None (occurrence: None)
  Receive Date: 20110119
  Receipt Date: 20110111
  Transmission Date: 20110831
  Serious: Yes (Death, Other)
  Sender: FDA-Public Use
  Company Number: JP-JNJFOC-20101206730

PATIENT
  Sex: Male

DRUGS (9)
  1. CRAVIT [Suspect]
     Indication: INFECTION
     Route: 048
  2. CRAVIT [Suspect]
     Indication: PNEUMONIA ASPIRATION
     Route: 048
  3. RENIVACE [Concomitant]
     Indication: HYPERTENSION
     Route: 065
  4. LAXOBERON [Concomitant]
     Indication: CONSTIPATION
     Route: 065
  5. GASTER D [Concomitant]
     Indication: GASTRIC PERFORATION
     Route: 065
  6. KCL ELIXIR [Concomitant]
     Indication: HYPOKALAEMIA
     Route: 065
  7. GRAMALIL [Concomitant]
     Indication: INSOMNIA
     Route: 065
  8. AMLODIPINE [Concomitant]
     Indication: HYPERTENSION
     Route: 065
  9. SILECE [Concomitant]
     Indication: INSOMNIA
     Route: 065

REACTIONS (5)
  - HEART RATE DECREASED [None]
  - HYPERSOMNIA [None]
  - DYSPHONIA [None]
  - HEPATIC FUNCTION ABNORMAL [None]
  - FEELING ABNORMAL [None]
